FAERS Safety Report 6053258-X (Version None)
Quarter: 2009Q1

REPORT INFORMATION
  Report Type: 
  Country: None (occurrence: None)
  Receive Date: 20090127
  Receipt Date: 20090114
  Transmission Date: 20090719
  Serious: Yes (Other)
  Sender: FDA-Public Use
  Company Number: US-CELGENEUS-163-20785-09010673

PATIENT
  Sex: Male

DRUGS (3)
  1. THALOMID [Suspect]
     Indication: MULTIPLE MYELOMA
     Route: 048
     Dates: start: 20061006
  2. THALOMID [Suspect]
     Dosage: 200-100MG
     Route: 048
     Dates: start: 20060126, end: 20060901
  3. THALOMID [Suspect]
     Dosage: 50-100MG
     Route: 048
     Dates: start: 20041116, end: 20050801

REACTIONS (2)
  - HIP ARTHROPLASTY [None]
  - PROTEIN TOTAL INCREASED [None]
